FAERS Safety Report 10062436 (Version 1)
Quarter: 2014Q2

REPORT INFORMATION
  Report Type: Spontaneous
  Country: US (occurrence: US)
  Receive Date: 20140407
  Receipt Date: 20140407
  Transmission Date: 20141212
  Serious: No
  Sender: FDA-Public Use
  Company Number: US-PFIZER INC-2014095542

PATIENT
  Sex: Male

DRUGS (3)
  1. FLECTOR [Suspect]
     Indication: INTERVERTEBRAL DISC PROTRUSION
     Dosage: UNK
     Dates: start: 201403
  2. FLECTOR [Suspect]
     Indication: NERVE COMPRESSION
  3. FLECTOR [Suspect]
     Indication: BACK PAIN

REACTIONS (2)
  - Nasopharyngitis [Unknown]
  - Off label use [Unknown]
